FAERS Safety Report 7236626-X (Version None)
Quarter: 2011Q1

REPORT INFORMATION
  Report Type: 
  Country: None (occurrence: None)
  Receive Date: 20110120
  Receipt Date: 20110117
  Transmission Date: 20110831
  Serious: Yes (Hospitalization, Other)
  Sender: FDA-Public Use
  Company Number: US-ELI_LILLY_AND_COMPANY-US201012002745

PATIENT
  Sex: Female
  Weight: 92.517 kg

DRUGS (19)
  1. ASPIRIN [Concomitant]
     Dosage: 325 MG, DAILY (1/D)
  2. PLAVIX [Concomitant]
     Dosage: 75 MG, DAILY (1/D)
  3. HUMATROPE [Suspect]
     Indication: GROWTH HORMONE DEFICIENCY
     Dosage: 0.5 MG, 6/W
     Route: 058
     Dates: start: 20080709
  4. LORAZEPAM [Concomitant]
     Dosage: 1 MG, 2/D
  5. AVAPRO [Concomitant]
     Dosage: 300 MG, DAILY (1/D)
  6. ALLEGRA [Concomitant]
     Dosage: 180 MG, DAILY (1/D)
  7. PREDNISONE [Concomitant]
     Dosage: 10 MG, DAILY (1/D)
  8. COREG [Concomitant]
     Dosage: 3.125 MG, 2/D
  9. PROTONIX [Concomitant]
     Dosage: 40 MG, DAILY (1/D)
  10. PROZAC [Concomitant]
     Dosage: 40 MG, DAILY (1/D)
  11. CALCIUM CITRATE [Concomitant]
     Dosage: 630 MG, 2/D
  12. KLONOPIN [Concomitant]
     Dosage: 0.05 MG, 2/D
  13. HUMATROPE [Suspect]
     Dosage: 0.5 MG, 6/W
     Route: 058
  14. FENTANYL [Concomitant]
     Dosage: 15 UG, UNKNOWN
  15. FLONASE [Concomitant]
  16. NITROGLYCERIN [Concomitant]
     Dosage: 1/2 INCH, EVERY 8 HRS
  17. SANDOSTATIN [Concomitant]
  18. HUMATROPE [Suspect]
     Dosage: 0.5 MG, 6/W
     Route: 058
  19. VERSED [Concomitant]
     Dosage: 5 MG, DIVIDED DOSES
     Route: 042

REACTIONS (6)
  - DIVERTICULUM [None]
  - MEMORY IMPAIRMENT [None]
  - CORONARY ARTERY DISEASE [None]
  - FALL [None]
  - RECTAL ULCER HAEMORRHAGE [None]
  - HIP FRACTURE [None]
